FAERS Safety Report 4537631-4 (Version None)
Quarter: 2004Q4

REPORT INFORMATION
  Report Type: 
  Country: None (occurrence: None)
  Receive Date: 20041221
  Receipt Date: 20041103
  Transmission Date: 20050328
  Serious: No
  Sender: FDA-Public Use
  Company Number: A-US2004-07979

PATIENT
  Age: 12 Year
  Sex: Female
  Weight: 52.2 kg

DRUGS (2)
  1. ZAVESCA [Suspect]
     Indication: NIEMANN-PICK DISEASE
     Dosage: 100 MG, TID, ORAL
     Route: 048
     Dates: start: 20040911
  2. ZOLOFT [Concomitant]

REACTIONS (2)
  - PAIN IN EXTREMITY [None]
  - TREMOR [None]
